FAERS Safety Report 5762416-0 (Version None)
Quarter: 2008Q2

REPORT INFORMATION
  Report Type: 
  Country: None (occurrence: None)
  Receive Date: 20080609
  Receipt Date: 20080528
  Transmission Date: 20081010
  Serious: Yes (Other)
  Sender: FDA-Public Use
  Company Number: DE-WYE-H04386408

PATIENT
  Age: 55 Year
  Sex: Male

DRUGS (1)
  1. PANTOPRAZOLE SODIUM [Suspect]
     Indication: REFLUX OESOPHAGITIS
     Route: 048
     Dates: start: 20080129, end: 20080425

REACTIONS (2)
  - HEPATITIS CHOLESTATIC [None]
  - PANCREATIC ENZYMES INCREASED [None]
